FAERS Safety Report 17916859 (Version 3)
Quarter: 2020Q3

REPORT INFORMATION
  Report Type: Report from Study
  Country: IN (occurrence: IN)
  Receive Date: 20200619
  Receipt Date: 20200702
  Transmission Date: 20201103
  Serious: Yes (Death, Hospitalization)
  Sender: FDA-Public Use
  Company Number: IN-PFIZER INC-2019468615

PATIENT
  Age: 54 Year
  Sex: Male
  Weight: 80.6 kg

DRUGS (2)
  1. LORLATINIB [Suspect]
     Active Substance: LORLATINIB
     Dosage: UNK
  2. LORLATINIB [Suspect]
     Active Substance: LORLATINIB
     Indication: LUNG ADENOCARCINOMA
     Dosage: 100 MG, 1X/DAY
     Route: 048
     Dates: start: 20190325

REACTIONS (7)
  - Diarrhoea [Recovered/Resolved]
  - Vomiting [Recovered/Resolved]
  - Product dispensing error [Unknown]
  - Decreased appetite [Recovering/Resolving]
  - Death [Fatal]
  - Hypercholesterolaemia [Recovering/Resolving]
  - Nausea [Recovered/Resolved]

NARRATIVE: CASE EVENT DATE: 20190402
